FAERS Safety Report 5640165-7 (Version None)
Quarter: 2008Q1

REPORT INFORMATION
  Report Type: 
  Country: None (occurrence: None)
  Receive Date: 20080227
  Receipt Date: 20080110
  Transmission Date: 20080703
  Serious: No
  Sender: FDA-Public Use
  Company Number: US-BAXTER-2008BH000125

PATIENT
  Age: 89 Year
  Sex: Female
  Weight: 60 kg

DRUGS (13)
  1. HEPARIN SODIUM [Suspect]
     Indication: ANTICOAGULANT THERAPY
     Route: 010
  2. VASOTEC [Concomitant]
     Indication: BLOOD PRESSURE
     Route: 048
  3. LASIX [Concomitant]
     Indication: RENAL FAILURE CHRONIC
     Route: 048
  4. NORVASC [Concomitant]
     Indication: BLOOD PRESSURE
     Route: 048
  5. ATENOLOL [Concomitant]
     Indication: BLOOD PRESSURE
     Route: 048
  6. PRAVACHOL [Concomitant]
     Indication: BLOOD CHOLESTEROL
     Route: 048
  7. ACETYLSALICYLIC ACID [Concomitant]
     Indication: CARDIOVASCULAR DISORDER
     Route: 048
  8. SYNTHROID [Concomitant]
     Indication: THYROID DISORDER
     Route: 048
  9. NEPHROCAPS [Concomitant]
     Indication: DRUG USE FOR UNKNOWN INDICATION
     Dosage: DOSE UNIT:UNKNOWN
     Route: 048
  10. EPOGEN [Concomitant]
     Indication: ANAEMIA
     Route: 042
  11. VENOFER [Concomitant]
     Indication: ANAEMIA
     Route: 042
  12. PHOSLO [Concomitant]
     Indication: HYPERPHOSPHATAEMIA
     Route: 048
  13. ZEMPLAR [Concomitant]
     Indication: HYPERPARATHYROIDISM SECONDARY
     Route: 042

REACTIONS (7)
  - BLOOD CULTURE POSITIVE [None]
  - DYSPNOEA [None]
  - FEELING HOT [None]
  - FLUSHING [None]
  - HYPERHIDROSIS [None]
  - NAUSEA [None]
  - THIRST [None]
